FAERS Safety Report 6739442-8 (Version None)
Quarter: 2010Q2

REPORT INFORMATION
  Report Type: 
  Country: None (occurrence: None)
  Receive Date: 20100525
  Receipt Date: 20100517
  Transmission Date: 20101027
  Serious: Yes (Death)
  Sender: FDA-Public Use
  Company Number: GXKR2010US05558

PATIENT
  Age: 66 Year
  Sex: Female

DRUGS (3)
  1. CYCLOSPORINE [Suspect]
     Dosage: 100 MG, BID
     Route: 048
  2. PREDNISONE TAB [Suspect]
     Dosage: 1 MG/KG, UNK
     Route: 048
  3. BLOOD TRANSFUSION, AUXILIARY PRODUCTS [Concomitant]

REACTIONS (3)
  - ACUTE MYELOID LEUKAEMIA [None]
  - DYSPNOEA EXERTIONAL [None]
  - HEPATIC FAILURE [None]
